FAERS Safety Report 7137944-6 (Version None)
Quarter: 2010Q4

REPORT INFORMATION
  Report Type: 
  Country: None (occurrence: None)
  Receive Date: 20101118
  Receipt Date: 20101105
  Transmission Date: 20110411
  Serious: Yes (Other)
  Sender: FDA-Public Use
  Company Number: 2010PV000095

PATIENT
  Age: 54 Year
  Sex: Female

DRUGS (7)
  1. DEPOCYT [Suspect]
     Indication: PROPHYLAXIS
     Dosage: 50 MG;Q3W;INTH
     Route: 037
  2. RITUXIMAB [Concomitant]
  3. CYCLOPHOSPHAMIDE [Concomitant]
  4. ADRIAMYCIN PFS [Concomitant]
  5. VINCRISTINE [Concomitant]
  6. PREDNISONE [Concomitant]
  7. HYDROCORTISONE [Concomitant]

REACTIONS (2)
  - CAUDA EQUINA SYNDROME [None]
  - CONUS MEDULLARIS SYNDROME [None]
